FAERS Safety Report 5305306-X (Version None)
Quarter: 2007Q2

REPORT INFORMATION
  Report Type: 
  Country: None (occurrence: None)
  Receive Date: 20070424
  Receipt Date: 20070413
  Transmission Date: 20071010
  Serious: Yes (Disabling)
  Sender: FDA-Public Use
  Company Number: PHHO2007SK05671

PATIENT
  Age: 58 Year
  Sex: Female

DRUGS (2)
  1. CERTICAN [Suspect]
     Indication: RENAL TRANSPLANT
     Dosage: 1.5 MG, BID
     Route: 048
     Dates: start: 20070210, end: 20070328
  2. NEORAL [Suspect]
     Indication: RENAL TRANSPLANT
     Dosage: 250 MG, BID
     Route: 048
     Dates: start: 20070210, end: 20070328

REACTIONS (7)
  - BLOOD CREATININE INCREASED [None]
  - COMPLICATIONS OF TRANSPLANT SURGERY [None]
  - HYPOPERFUSION [None]
  - KIDNEY TRANSPLANT REJECTION [None]
  - NEPHRECTOMY [None]
  - RENAL NECROSIS [None]
  - TREATMENT NONCOMPLIANCE [None]
